FAERS Safety Report 22012845 (Version 5)
Quarter: 2023Q2

REPORT INFORMATION
  Report Type: Spontaneous
  Country: US (occurrence: US)
  Receive Date: 20230220
  Receipt Date: 20230413
  Transmission Date: 20230722
  Serious: Yes (Death, Other)
  Sender: FDA-Public Use
  Company Number: US-Blueprint Medicines Corporation-SP-US-2023-000320

PATIENT
  Age: 72 Year
  Sex: Male

DRUGS (5)
  1. AYVAKIT [Suspect]
     Active Substance: AVAPRITINIB
     Indication: Gastrointestinal stromal tumour
     Route: 048
     Dates: start: 20221119
  2. AYVAKIT [Suspect]
     Active Substance: AVAPRITINIB
     Route: 065
  3. AYVAKIT [Suspect]
     Active Substance: AVAPRITINIB
     Route: 048
     Dates: start: 20221119
  4. AYVAKIT [Suspect]
     Active Substance: AVAPRITINIB
     Dosage: 50 MG TABLET FOR TOTAL DAILY DOSE OF 150 MG
     Route: 048
     Dates: start: 20221119
  5. AYVAKIT [Suspect]
     Active Substance: AVAPRITINIB
     Dosage: 50 MG TABLET FOR TOTAL DAILY DOSE OF 150 MG
     Route: 048
     Dates: start: 20221119

REACTIONS (11)
  - Death [Fatal]
  - Hyperthyroidism [Not Recovered/Not Resolved]
  - Haemoglobin decreased [Not Recovered/Not Resolved]
  - Red blood cell count decreased [Unknown]
  - Platelet count decreased [Unknown]
  - Abdominal pain [Recovering/Resolving]
  - Fluid retention [Recovering/Resolving]
  - Anaemia [Not Recovered/Not Resolved]
  - Pre-existing condition improved [Unknown]
  - Full blood count abnormal [Not Recovered/Not Resolved]
  - Drug ineffective [Unknown]

NARRATIVE: CASE EVENT DATE: 20221119
